FAERS Safety Report 16848787 (Version 2)
Quarter: 2020Q3

REPORT INFORMATION
  Report Type: Spontaneous
  Country: US (occurrence: US)
  Receive Date: 20190925
  Receipt Date: 20200904
  Transmission Date: 20201102
  Serious: Yes (Hospitalization, Other)
  Sender: FDA-Public Use
  Company Number: US-GILEAD-2019-0429707

PATIENT
  Sex: Male
  Weight: 92.97 kg

DRUGS (37)
  1. MONOPRIL [Concomitant]
     Active Substance: FOSINOPRIL SODIUM
  2. CLONIDINE. [Concomitant]
     Active Substance: CLONIDINE
  3. PHOSLO [Concomitant]
     Active Substance: CALCIUM ACETATE
  4. VIAGRA [Concomitant]
     Active Substance: SILDENAFIL CITRATE
  5. RENVELA [Concomitant]
     Active Substance: SEVELAMER CARBONATE
     Dosage: UNK
  6. TRUVADA [Suspect]
     Active Substance: EMTRICITABINE\TENOFOVIR DISOPROXIL FUMARATE
     Indication: HIV INFECTION
     Dosage: UNK
     Route: 048
     Dates: start: 2001
  7. TIVICAY [Concomitant]
     Active Substance: DOLUTEGRAVIR SODIUM
     Dosage: UNK
  8. FOSINOPRIL [Concomitant]
     Active Substance: FOSINOPRIL
  9. CIALIS [Concomitant]
     Active Substance: TADALAFIL
  10. CRESTOR [Concomitant]
     Active Substance: ROSUVASTATIN CALCIUM
  11. VIREAD [Suspect]
     Active Substance: TENOFOVIR DISOPROXIL FUMARATE
     Indication: HIV INFECTION
     Dosage: UNK
     Route: 048
     Dates: start: 2001
  12. LEUCOVORIN [FOLINIC ACID] [Concomitant]
     Active Substance: LEUCOVORIN
  13. AMLODIPINE [Concomitant]
     Active Substance: AMLODIPINE BESYLATE
  14. CALCIUM ACETATE. [Concomitant]
     Active Substance: CALCIUM ACETATE
  15. ASPIRIN [ACETYLSALICYLIC ACID] [Concomitant]
     Active Substance: ASPIRIN
  16. SELZENTRY [Concomitant]
     Active Substance: MARAVIROC
  17. SUSTIVA [Concomitant]
     Active Substance: EFAVIRENZ
  18. CLINDAMYCIN. [Concomitant]
     Active Substance: CLINDAMYCIN
  19. SULFAMETHOXAZOLE AND TRIMETHOPRIM [Concomitant]
     Active Substance: SULFAMETHOXAZOLE\TRIMETHOPRIM
  20. DIFLUCAN [Concomitant]
     Active Substance: FLUCONAZOLE
  21. VITAMIN B12 [VITAMIN B12 NOS] [Concomitant]
     Active Substance: CYANOCOBALAMIN
  22. IBUPROFEN. [Concomitant]
     Active Substance: IBUPROFEN
  23. ENALAPRIL [Concomitant]
     Active Substance: ENALAPRIL
  24. VITAMIN D [VITAMIN D NOS] [Concomitant]
     Active Substance: VITAMIN D NOS
  25. TRUVADA [Suspect]
     Active Substance: EMTRICITABINE\TENOFOVIR DISOPROXIL FUMARATE
     Dosage: UNK
     Route: 048
     Dates: start: 20050117, end: 200602
  26. LABETALOL [Concomitant]
     Active Substance: LABETALOL\LABETALOL HYDROCHLORIDE
  27. METOPROLOL TARTRATE. [Concomitant]
     Active Substance: METOPROLOL TARTRATE
     Dosage: UNK
  28. ATORVASTATIN [Concomitant]
     Active Substance: ATORVASTATIN
  29. CLOPIDOGREL [Concomitant]
     Active Substance: CLOPIDOGREL BISULFATE
  30. LAMIVUDINE. [Concomitant]
     Active Substance: LAMIVUDINE
     Dosage: UNK
  31. VIREAD [Suspect]
     Active Substance: TENOFOVIR DISOPROXIL FUMARATE
     Dosage: UNK
     Route: 048
     Dates: start: 20020630, end: 201512
  32. EPIVIR [Concomitant]
     Active Substance: LAMIVUDINE
  33. SULAR [Concomitant]
     Active Substance: NISOLDIPINE
  34. NIFEDIPINE. [Concomitant]
     Active Substance: NIFEDIPINE
  35. BISACODYL. [Concomitant]
     Active Substance: BISACODYL
  36. ZITHROMAX [Concomitant]
     Active Substance: AZITHROMYCIN DIHYDRATE
  37. DARAPRIM [Concomitant]
     Active Substance: PYRIMETHAMINE

REACTIONS (9)
  - Fatigue [Not Recovered/Not Resolved]
  - Anxiety [Not Recovered/Not Resolved]
  - End stage renal disease [Unknown]
  - Economic problem [Not Recovered/Not Resolved]
  - Emotional distress [Not Recovered/Not Resolved]
  - Loss of personal independence in daily activities [Not Recovered/Not Resolved]
  - Anhedonia [Not Recovered/Not Resolved]
  - Renal failure [Not Recovered/Not Resolved]
  - Pain [Not Recovered/Not Resolved]

NARRATIVE: CASE EVENT DATE: 2005
